FAERS Safety Report 7641755-2 (Version None)
Quarter: 2011Q3

REPORT INFORMATION
  Report Type: 
  Country: None (occurrence: None)
  Receive Date: 20110727
  Receipt Date: 20110727
  Transmission Date: 20111222
  Serious: Yes (Hospitalization)
  Sender: FDA-Public Use
  Company Number: None

PATIENT
  Sex: Male
  Weight: 79 kg

DRUGS (5)
  1. VINCRISTINE SULFATE [Suspect]
     Dosage: 6 MG
  2. PEG-L-ASPARAGINASE (K-H) [Suspect]
     Dosage: 4625 MG
  3. METHOTREXATE [Suspect]
     Dosage: 15 MG
  4. DEXAMETHASONE [Suspect]
     Dosage: 160 MG
  5. DOXORUBICIN HYDROCHLORIDE [Suspect]
     Dosage: 138 MG

REACTIONS (4)
  - CEREBRAL INFARCTION [None]
  - CEREBRAL VENOUS THROMBOSIS [None]
  - SUPERIOR SAGITTAL SINUS THROMBOSIS [None]
  - HYPONATRAEMIA [None]
